FAERS Safety Report 11651700 (Version 1)
Quarter: 2015Q4

REPORT INFORMATION
  Report Type: Spontaneous
  Country: US (occurrence: None)
  Receive Date: 20151021
  Receipt Date: 20151021
  Transmission Date: 20160304
  Serious: Yes (Other)
  Sender: FDA-Public Use
  Company Number: None

PATIENT
  Age: 62 Year
  Sex: Male
  Weight: 77.11 kg

DRUGS (1)
  1. POLYETHYLENE GLYCOL 3350 8.3 OZ POWDER FOR SOLUTION PERRIGO [Suspect]
     Active Substance: POLYETHYLENE GLYCOL 3350
     Indication: COLONOSCOPY
     Dosage: 8 OZ EVERY 15 MINUTE
     Route: 048
     Dates: start: 20151019, end: 20151019

REACTIONS (9)
  - Pruritus generalised [None]
  - Urticaria [None]
  - Burning sensation [None]
  - Lip swelling [None]
  - Paraesthesia oral [None]
  - Peripheral swelling [None]
  - Flushing [None]
  - Swollen tongue [None]
  - Palpitations [None]

NARRATIVE: CASE EVENT DATE: 20151019
